FAERS Safety Report 9908340 (Version 3)
Quarter: 2014Q1

REPORT INFORMATION
  Report Type: Spontaneous
  Country: JP (occurrence: JP)
  Receive Date: 20140219
  Receipt Date: 20140310
  Transmission Date: 20141002
  Serious: Yes (Hospitalization, Other)
  Sender: FDA-Public Use
  Company Number: JP-JNJFOC-20140210343

PATIENT
  Age: 75 Year
  Sex: Female

DRUGS (2)
  1. REMICADE [Suspect]
     Indication: LARGE INTESTINAL ULCER
     Route: 042
     Dates: start: 200906
  2. PREDNISONE [Suspect]
     Indication: ANKYLOSING SPONDYLITIS
     Route: 048

REACTIONS (2)
  - Meningitis cryptococcal [Recovering/Resolving]
  - Off label use [Unknown]
